FAERS Safety Report 4389977-0 (Version None)
Quarter: 2004Q2

REPORT INFORMATION
  Report Type: 
  Country: None (occurrence: None)
  Receive Date: 20040630
  Receipt Date: 20040617
  Transmission Date: 20050107
  Serious: Yes (Hospitalization, Other)
  Sender: FDA-Public Use
  Company Number: 2004041563

PATIENT
  Age: 10 Year
  Sex: Female

DRUGS (2)
  1. PHENYTOIN SODIUM [Suspect]
     Indication: ARRHYTHMIA
     Dosage: (2 IN 1 D), ORAL
     Route: 048
     Dates: start: 20040615
  2. LIPITOR [Suspect]
     Indication: ILL-DEFINED DISORDER
     Dosage: ORAL
     Route: 048
     Dates: start: 20040615

REACTIONS (3)
  - MEDICATION ERROR [None]
  - MOVEMENT DISORDER [None]
  - SYNCOPE [None]
